FAERS Safety Report 24055913 (Version 5)
Quarter: 2024Q4

REPORT INFORMATION
  Report Type: Report from Study
  Country: JP (occurrence: JP)
  Receive Date: 20240705
  Receipt Date: 20241029
  Transmission Date: 20250115
  Serious: Yes (Hospitalization, Other)
  Sender: BRISTOL-MYERS SQUIBB COMPANY
  Company Number: JP-ONO-2024JP014192

PATIENT
  Age: 70 Year
  Sex: Male
  Weight: 76.2 kg

DRUGS (3)
  1. OPDIVO [Suspect]
     Active Substance: NIVOLUMAB
     Indication: Squamous cell carcinoma of lung
     Dosage: 360 MG
     Route: 041
     Dates: start: 20240430, end: 20240618
  2. CARBOPLATIN [Concomitant]
     Active Substance: CARBOPLATIN
     Indication: Squamous cell carcinoma of lung
     Dosage: AUC 4
     Dates: start: 20240430, end: 20240430
  3. PACLITAXEL [Concomitant]
     Active Substance: PACLITAXEL
     Indication: Squamous cell carcinoma of lung
     Dosage: 160 MG/M2
     Dates: start: 20240430, end: 20240430

REACTIONS (3)
  - Haemorrhagic cerebral infarction [Recovering/Resolving]
  - Arterial thrombosis [Recovering/Resolving]
  - Sputum retention [Recovered/Resolved]

NARRATIVE: CASE EVENT DATE: 20240504
